FAERS Safety Report 21957740 (Version 2)
Quarter: 2023Q1

REPORT INFORMATION
  Report Type: Spontaneous
  Country: SI (occurrence: SI)
  Receive Date: 20230206
  Receipt Date: 20230222
  Transmission Date: 20230417
  Serious: Yes (Other)
  Sender: FDA-Public Use
  Company Number: SI-PFIZER INC-PV202300021704

PATIENT
  Age: 52 Year
  Sex: Female

DRUGS (7)
  1. IBRANCE [Suspect]
     Active Substance: PALBOCICLIB
     Indication: Breast cancer metastatic
     Dosage: 3W/1W
     Route: 048
     Dates: start: 201901, end: 201903
  2. IBRANCE [Suspect]
     Active Substance: PALBOCICLIB
     Dosage: 100 MG
     Route: 048
     Dates: start: 201903, end: 201907
  3. IBRANCE [Suspect]
     Active Substance: PALBOCICLIB
     Dosage: 75 MG
     Route: 048
     Dates: start: 201907, end: 202207
  4. LETROZOLE [Suspect]
     Active Substance: LETROZOLE
     Dosage: 2.5 MG
     Dates: start: 201901
  5. FULVESTRANT [Concomitant]
     Active Substance: FULVESTRANT
     Dosage: 500 MG I.M/4W
     Route: 030
     Dates: start: 202208
  6. ALPELISIB [Concomitant]
     Active Substance: ALPELISIB
     Dosage: 300 MG/D
     Dates: start: 202208
  7. RAMIPRIL [Concomitant]
     Active Substance: RAMIPRIL
     Dosage: 5 MG

REACTIONS (5)
  - Hepatotoxicity [Recovering/Resolving]
  - Neoplasm progression [Unknown]
  - Pruritus [Unknown]
  - Diarrhoea [Unknown]
  - Hyperglycaemia [Unknown]

NARRATIVE: CASE EVENT DATE: 20190301
